FAERS Safety Report 22303377 (Version 12)
Quarter: 2024Q1

REPORT INFORMATION
  Report Type: Report from Study
  Country: MX (occurrence: MX)
  Receive Date: 20230510
  Receipt Date: 20240311
  Transmission Date: 20240410
  Serious: Yes (Life-Threatening, Other)
  Sender: FDA-Public Use
  Company Number: MX-002147023-NVSC2023MX080519

PATIENT
  Age: 63 Year
  Sex: Female
  Weight: 96 kg

DRUGS (4)
  1. KISQALI [Suspect]
     Active Substance: RIBOCICLIB
     Indication: Breast cancer
     Dosage: UNK (START DATE: 10 MONTHS AGO)
     Route: 048
  2. KISQALI [Suspect]
     Active Substance: RIBOCICLIB
     Dosage: UNK
     Route: 048
  3. ZOLEDRONIC ACID [Suspect]
     Active Substance: ZOLEDRONIC ACID
     Indication: Product used for unknown indication
     Dosage: UNK
     Route: 065
  4. ACETAMINOPHEN\TRAMADOL [Suspect]
     Active Substance: ACETAMINOPHEN\TRAMADOL
     Indication: Pain
     Dosage: UNK
     Route: 065

REACTIONS (78)
  - Breast cancer [Unknown]
  - Osteonecrosis of jaw [Unknown]
  - Oral discharge [Unknown]
  - Tooth abscess [Unknown]
  - Purulent discharge [Unknown]
  - Toothache [Unknown]
  - Infection [Unknown]
  - Suicidal ideation [Unknown]
  - Breast injury [Unknown]
  - Metastasis [Unknown]
  - Metastases to bone [Unknown]
  - Metastases to spine [Unknown]
  - Malignant neoplasm progression [Unknown]
  - Tumour pain [Unknown]
  - Colitis [Unknown]
  - Body surface area decreased [Unknown]
  - Renal injury [Unknown]
  - Hepatitis [Unknown]
  - Bladder injury [Unknown]
  - Emotional distress [Unknown]
  - Bone disorder [Unknown]
  - Arterial disorder [Unknown]
  - Crying [Unknown]
  - Mobility decreased [Unknown]
  - Musculoskeletal stiffness [Unknown]
  - Throat tightness [Unknown]
  - Sciatica [Unknown]
  - Dysstasia [Unknown]
  - Gait disturbance [Unknown]
  - Food refusal [Unknown]
  - Pain [Unknown]
  - Anxiety [Unknown]
  - Hypersomnia [Unknown]
  - Taste disorder [Unknown]
  - Depressed mood [Unknown]
  - Rhinorrhoea [Unknown]
  - Bone pain [Unknown]
  - Musculoskeletal pain [Unknown]
  - Somnolence [Unknown]
  - Feeling drunk [Unknown]
  - Feeling abnormal [Unknown]
  - Emotional disorder [Unknown]
  - Fear [Unknown]
  - Feeling of despair [Unknown]
  - Apathy [Unknown]
  - Joint injury [Unknown]
  - Oedema [Unknown]
  - General physical health deterioration [Unknown]
  - Stress [Unknown]
  - Pain in jaw [Unknown]
  - Limb discomfort [Unknown]
  - Constricted affect [Unknown]
  - Tooth disorder [Unknown]
  - Bronchitis [Unknown]
  - Catarrh [Unknown]
  - Irritable bowel syndrome [Unknown]
  - Pain in extremity [Unknown]
  - Arthralgia [Unknown]
  - Malaise [Unknown]
  - Alopecia [Not Recovered/Not Resolved]
  - Fatigue [Unknown]
  - Dyspnoea [Unknown]
  - Nausea [Unknown]
  - Dizziness [Unknown]
  - Headache [Unknown]
  - Decreased appetite [Unknown]
  - Abdominal pain upper [Unknown]
  - Nasopharyngitis [Unknown]
  - Abdominal discomfort [Unknown]
  - Vomiting [Unknown]
  - Diarrhoea [Unknown]
  - Fear of falling [Unknown]
  - Frustration tolerance decreased [Recovering/Resolving]
  - Ephelides [Unknown]
  - Dry skin [Unknown]
  - Hypoaesthesia [Unknown]
  - Urinary incontinence [Unknown]
  - Constipation [Unknown]

NARRATIVE: CASE EVENT DATE: 20230807
